FAERS Safety Report 18099550 (Version 1)
Quarter: 2020Q3

REPORT INFORMATION
  Report Type: Spontaneous
  Country: PL (occurrence: PL)
  Receive Date: 20200731
  Receipt Date: 20200731
  Transmission Date: 20201103
  Serious: No
  Sender: FDA-Public Use
  Company Number: PL-B.BRAUN MEDICAL INC.-2088002

PATIENT
  Age: 7 Year
  Sex: Male
  Weight: 28 kg

DRUGS (2)
  1. METRONIDAZOLE INJECTION USP (5 MG/ML) IN PAB? PLASTIC CONTAINER (NDA 0 [Suspect]
     Active Substance: METRONIDAZOLE
     Route: 042
     Dates: start: 20161220, end: 20161222
  2. BIODACINE 250 MG IN 100ML OF NACL ? 2 DOSES [Suspect]
     Active Substance: AMIKACIN
     Route: 042
     Dates: start: 20161220, end: 20161222

REACTIONS (1)
  - Rash [Recovered/Resolved]

NARRATIVE: CASE EVENT DATE: 20161221
